FAERS Safety Report 7805222-5 (Version None)
Quarter: 2011Q4

REPORT INFORMATION
  Report Type: 
  Country: None (occurrence: None)
  Receive Date: 20111010
  Receipt Date: 20111005
  Transmission Date: 20120403
  Serious: Yes (Death, Hospitalization, Other)
  Sender: FDA-Public Use
  Company Number: US-AMGEN-USASP2010011091

PATIENT
  Age: 80 Year
  Sex: Male

DRUGS (8)
  1. LASIX [Concomitant]
     Dosage: 40 MG, UNK
  2. NPLATE [Suspect]
     Indication: IDIOPATHIC THROMBOCYTOPENIC PURPURA
     Dosage: 8 MUG/KG, UNK
     Route: 058
     Dates: start: 20100407, end: 20100915
  3. COLCHICINE [Concomitant]
     Dosage: 0.6 MG, QD
  4. PREVACID [Concomitant]
     Dosage: 15 MG, QD
  5. ALLOPURINOL [Concomitant]
     Dosage: 100 MG, QD
  6. TYLENOL (CAPLET) [Concomitant]
     Dosage: 650 MG, Q4H
  7. LASIX [Concomitant]
     Dosage: 60 MG, QD
  8. NIFEDIPINE [Concomitant]
     Dosage: 60 MG, QD

REACTIONS (6)
  - T-CELL LYMPHOMA [None]
  - MYELODYSPLASTIC SYNDROME [None]
  - WHITE BLOOD CELL COUNT INCREASED [None]
  - THROMBOCYTOPENIA [None]
  - LYMPHADENOPATHY [None]
  - MYELOPROLIFERATIVE DISORDER [None]
